FAERS Safety Report 10209489 (Version 1)
Quarter: 2014Q2

REPORT INFORMATION
  Report Type: Spontaneous
  Country: US (occurrence: US)
  Receive Date: 20140601
  Receipt Date: 20140601
  Transmission Date: 20141212
  Serious: No
  Sender: FDA-Public Use
  Company Number: US-009507513-1401USA007195

PATIENT
  Sex: Female
  Weight: 54.42 kg

DRUGS (1)
  1. MIRALAX [Suspect]
     Indication: PRODUCT USED FOR UNKNOWN INDICATION
     Dosage: 17 G, QPM
     Route: 048

REACTIONS (4)
  - Vomiting [Recovered/Resolved]
  - Retching [Recovered/Resolved]
  - Product quality issue [Unknown]
  - Product physical consistency issue [Unknown]
